FAERS Safety Report 6146222-3 (Version None)
Quarter: 2009Q2

REPORT INFORMATION
  Report Type: 
  Country: None (occurrence: None)
  Receive Date: 20090407
  Receipt Date: 20090330
  Transmission Date: 20091009
  Serious: Yes (Other)
  Sender: FDA-Public Use
  Company Number: PHHY2009GB11902

PATIENT
  Age: 64 Year
  Sex: Female

DRUGS (5)
  1. CYCLOSPORINE [Suspect]
     Indication: PYODERMA GANGRENOSUM
     Dosage: 100 MG, BID
  2. TACROLIMUS [Suspect]
     Indication: PYODERMA GANGRENOSUM
     Dosage: 5 MG, BID
  3. PREDNISOLONE [Concomitant]
     Indication: PYODERMA GANGRENOSUM
     Dosage: 60 MG/DAY
  4. CIPROFLOXACIN [Concomitant]
     Indication: OSTEOMYELITIS
  5. FLUCLOXACILLIN [Concomitant]
     Indication: OSTEOMYELITIS

REACTIONS (3)
  - DISEASE RECURRENCE [None]
  - MUSCULAR WEAKNESS [None]
  - MYOPATHY [None]
